FAERS Safety Report 16617460 (Version 1)
Quarter: 2019Q3

REPORT INFORMATION
  Report Type: Spontaneous
  Country: NL (occurrence: NL)
  Receive Date: 20190723
  Receipt Date: 20190723
  Transmission Date: 20191004
  Serious: Yes (Life-Threatening)
  Sender: FDA-Public Use
  Company Number: NL-MYLANLABS-2019M1068157

PATIENT
  Sex: Male
  Weight: 90 kg

DRUGS (3)
  1. AERIUS                             /01009701/ [Concomitant]
     Active Substance: EBASTINE
     Dosage: UNK
  2. METOPROLOL. [Suspect]
     Active Substance: METOPROLOL
     Indication: HYPERTENSION
     Dosage: 50 MILLIGRAM, QD, 1X PER DAY 1 PIECE
     Route: 048
     Dates: start: 2007, end: 2014
  3. PARACETAMOL [Concomitant]
     Active Substance: ACETAMINOPHEN
     Dosage: N.N. (FEW TIMES A WEEK)

REACTIONS (1)
  - Angioedema [Recovered/Resolved]
